FAERS Safety Report 13772291 (Version 1)
Quarter: 2017Q3

REPORT INFORMATION
  Report Type: Spontaneous
  Country: US (occurrence: US)
  Receive Date: 20170720
  Receipt Date: 20170720
  Transmission Date: 20171127
  Serious: Yes (Other)
  Sender: FDA-Public Use
  Company Number: US-DRREDDYS-USA/USA/17/0092225

PATIENT
  Age: 8 Year
  Sex: Male

DRUGS (1)
  1. GUANFACINE HYDROCHLORIDE. [Suspect]
     Active Substance: GUANFACINE HYDROCHLORIDE
     Indication: ATTENTION DEFICIT/HYPERACTIVITY DISORDER
     Route: 065

REACTIONS (6)
  - Flushing [Unknown]
  - Headache [Recovered/Resolved]
  - Hypertensive emergency [Recovered/Resolved]
  - Hyperhidrosis [Unknown]
  - Lethargy [Unknown]
  - Malaise [Unknown]
